FAERS Safety Report 7207542-4 (Version None)
Quarter: 2011Q1

REPORT INFORMATION
  Report Type: 
  Country: None (occurrence: None)
  Receive Date: 20110103
  Receipt Date: 20101116
  Transmission Date: 20110831
  Serious: No
  Sender: FDA-Public Use
  Company Number: US-JNJFOC-20101202647

PATIENT
  Sex: Female

DRUGS (4)
  1. CYMBALTA [Concomitant]
     Indication: PRODUCT USED FOR UNKNOWN INDICATION
  2. INVEGA [Suspect]
     Indication: BIPOLAR DISORDER
     Route: 048
  3. INVEGA [Suspect]
     Route: 048
  4. KLONOPIN [Concomitant]
     Indication: PRODUCT USED FOR UNKNOWN INDICATION

REACTIONS (5)
  - FEELING ABNORMAL [None]
  - BIPOLAR I DISORDER [None]
  - ANGER [None]
  - DRUG INEFFECTIVE [None]
  - IRRITABILITY [None]
